FAERS Safety Report 22190288 (Version 3)
Quarter: 2023Q2

REPORT INFORMATION
  Report Type: Spontaneous
  Country: BE (occurrence: BE)
  Receive Date: 20230410
  Receipt Date: 20230525
  Transmission Date: 20230722
  Serious: Yes (Other)
  Sender: FDA-Public Use
  Company Number: BE-002147023-NVSC2023BE080702

PATIENT
  Age: 45 Year
  Sex: Male

DRUGS (4)
  1. TEGRETOL XR [Suspect]
     Active Substance: CARBAMAZEPINE
     Indication: Trigeminal neuralgia
     Dosage: UNK
     Route: 065
     Dates: start: 2012
  2. TEGRETOL XR [Suspect]
     Active Substance: CARBAMAZEPINE
     Dosage: UNK (STRENGTH: 200)
     Route: 065
  3. TEGRETOL XR [Suspect]
     Active Substance: CARBAMAZEPINE
     Dosage: 2 DOSAGE FORM OF 200, TID
     Route: 065
     Dates: start: 202202
  4. TEGRETOL XR [Suspect]
     Active Substance: CARBAMAZEPINE
     Dosage: 1 DOSAGE FORM OF 400, TID
     Route: 065

REACTIONS (2)
  - Epilepsy [Recovering/Resolving]
  - Suspected product quality issue [Unknown]
